FAERS Safety Report 9399231 (Version 1)
Quarter: 2013Q3

REPORT INFORMATION
  Report Type: Spontaneous
  Country: JP (occurrence: None)
  Receive Date: 20130709
  Receipt Date: 20130709
  Transmission Date: 20140515
  Serious: Yes (Other)
  Sender: FDA-Public Use
  Company Number: SYM-2013-05364

PATIENT
  Age: 73 Year
  Sex: Male

DRUGS (6)
  1. FLOUROURACIL [Suspect]
     Indication: OESOPHAGEAL CARCINOMA
  2. DOCETAXEL [Suspect]
     Indication: OESOPHAGEAL CARCINOMA
  3. CISPLATIN [Suspect]
     Indication: OESOPHAGEAL CARCINOMA
  4. FLOUROURACIL [Concomitant]
  5. DOCETAXEL (DOCETAXEL) (DOCETAXEL) [Concomitant]
  6. CISPLATIN (CISPLATIN) (CISPLATIN) [Concomitant]

REACTIONS (2)
  - Febrile neutropenia [None]
  - Hypophagia [None]
